FAERS Safety Report 5859796-4 (Version None)
Quarter: 2008Q3

REPORT INFORMATION
  Report Type: 
  Country: None (occurrence: None)
  Receive Date: 20080827
  Receipt Date: 20080819
  Transmission Date: 20090109
  Serious: Yes (Hospitalization, Other)
  Sender: FDA-Public Use
  Company Number: PR-MERCK-0612USA04015

PATIENT
  Age: 57 Year
  Sex: Female
  Weight: 58 kg

DRUGS (4)
  1. FOSAMAX [Suspect]
     Indication: OSTEOPOROSIS
     Route: 048
     Dates: start: 19990101, end: 20060101
  2. FOSAMAX [Suspect]
     Route: 048
     Dates: start: 20030519
  3. FOSAMAX [Suspect]
     Route: 048
     Dates: start: 20001218
  4. FOSAMAX PLUS D [Suspect]
     Indication: OSTEOPOROSIS
     Route: 048

REACTIONS (11)
  - BREAST MASS [None]
  - GINGIVAL ABSCESS [None]
  - HYPOTHYROIDISM [None]
  - LYMPHOCYTOSIS [None]
  - NEPHRECTOMY [None]
  - NEUTROPENIA [None]
  - OSTEONECROSIS [None]
  - PERIARTHRITIS [None]
  - PERIODONTITIS [None]
  - THYROIDITIS CHRONIC [None]
  - TOOTH ABSCESS [None]
